FAERS Safety Report 5035294-5 (Version None)
Quarter: 2006Q2

REPORT INFORMATION
  Report Type: 
  Country: None (occurrence: None)
  Receive Date: 20060519
  Receipt Date: 20060321
  Transmission Date: 20061013
  Serious: No
  Sender: FDA-Public Use
  Company Number: TPA2006A00488

PATIENT
  Age: 36 Year
  Sex: Male
  Weight: 78.4723 kg

DRUGS (4)
  1. ROZEREM [Suspect]
     Indication: INSOMNIA
     Dosage: 8 MG, HS, PER ORAL
     Route: 048
     Dates: start: 20060303
  2. TRAZODONE (TRAZODONE) (50 MILLIGRAM) [Concomitant]
  3. CLARITIN [Concomitant]
  4. CYCLOBENZAPRINE (CYCLOBENZAPRINE) (10 MILLIGRAM [Concomitant]

REACTIONS (2)
  - LIBIDO DECREASED [None]
  - MUSCULOSKELETAL CHEST PAIN [None]
